FAERS Safety Report 21091484 (Version 1)
Quarter: 2022Q3

REPORT INFORMATION
  Report Type: Spontaneous
  Country: US (occurrence: US)
  Receive Date: 20220717
  Receipt Date: 20220717
  Transmission Date: 20221027
  Serious: No
  Sender: FDA-Public Use
  Company Number: US-ORGANON-O2207USA001021

PATIENT
  Sex: Female

DRUGS (3)
  1. MAXALT [Suspect]
     Active Substance: RIZATRIPTAN BENZOATE
     Indication: Migraine
     Dosage: UNK
     Route: 048
  2. CANDESARTAN [Concomitant]
     Active Substance: CANDESARTAN
     Dosage: UNK
  3. FAMOTIDINE [Concomitant]
     Active Substance: FAMOTIDINE
     Dosage: UNK

REACTIONS (1)
  - Drug ineffective [Unknown]
